FAERS Safety Report 9752143 (Version 1)
Quarter: 2013Q4

REPORT INFORMATION
  Report Type: Spontaneous
  Country: US (occurrence: None)
  Receive Date: 20131212
  Receipt Date: 20131212
  Transmission Date: 20140711
  Serious: Yes (Life-Threatening, Hospitalization)
  Sender: FDA-Public Use
  Company Number: None

PATIENT
  Age: 34 Year
  Sex: Female
  Weight: 62.14 kg

DRUGS (1)
  1. LEVOFLAXACIN 500MG DR. REDDY [Suspect]
     Dosage: ONE PILL DAILY

REACTIONS (1)
  - Angioedema [None]
